FAERS Safety Report 11914199 (Version 2)
Quarter: 2016Q1

REPORT INFORMATION
  Report Type: Other
  Country: BY (occurrence: BY)
  Receive Date: 20160113
  Receipt Date: 20160128
  Transmission Date: 20160526
  Serious: Yes (Other)
  Sender: FDA-Public Use
  Company Number: BY-EMD SERONO-8062738

PATIENT

DRUGS (1)
  1. CETRORELIX [Suspect]
     Active Substance: CETRORELIX
     Indication: IN VITRO FERTILISATION

REACTIONS (1)
  - Myasthenia gravis [Recovering/Resolving]
